FAERS Safety Report 10058318 (Version 1)
Quarter: 2014Q2

REPORT INFORMATION
  Report Type: Spontaneous
  Country: FR (occurrence: FR)
  Receive Date: 20140404
  Receipt Date: 20140404
  Transmission Date: 20141212
  Serious: Yes (Hospitalization)
  Sender: FDA-Public Use
  Company Number: FR-SA-2014SA036087

PATIENT
  Age: 82 Year
  Sex: Male

DRUGS (6)
  1. LASILIX [Suspect]
     Indication: RENAL FAILURE
     Route: 048
     Dates: start: 20131216, end: 20131231
  2. PREVISCAN [Suspect]
     Indication: ATRIAL FIBRILLATION
     Route: 048
     Dates: start: 20131223, end: 20131230
  3. PREVISCAN [Suspect]
     Indication: ATRIAL FIBRILLATION
     Route: 048
     Dates: start: 20140107, end: 20140112
  4. GENTAMICIN SULFATE [Suspect]
     Indication: PRODUCT USED FOR UNKNOWN INDICATION
     Route: 042
     Dates: start: 20131216, end: 20131231
  5. VANCOMYCIN [Concomitant]
  6. BISOPROLOL HEMIFUMARATE [Concomitant]

REACTIONS (3)
  - Renal tubular necrosis [Recovered/Resolved]
  - Rash maculo-papular [Recovered/Resolved]
  - Renal failure acute [Recovered/Resolved]
